FAERS Safety Report 16243828 (Version 1)
Quarter: 2019Q2

REPORT INFORMATION
  Report Type: Spontaneous
  Country: US (occurrence: US)
  Receive Date: 20190425
  Receipt Date: 20190425
  Transmission Date: 20190711
  Serious: Yes (Hospitalization)
  Sender: FDA-Public Use
  Company Number: None

PATIENT
  Age: 37 Year
  Sex: Female

DRUGS (10)
  1. VENTOLIN [Concomitant]
     Active Substance: ALBUTEROL SULFATE
  2. LYRICA [Concomitant]
     Active Substance: PREGABALIN
  3. ADVAIR HFA [Concomitant]
     Active Substance: FLUTICASONE PROPIONATE\SALMETEROL XINAFOATE
  4. EPINEPHRINE. [Concomitant]
     Active Substance: EPINEPHRINE
  5. CYCLOBENZAPR [Concomitant]
     Active Substance: CYCLOBENZAPRINE
  6. DULOXETINE. [Concomitant]
     Active Substance: DULOXETINE
  7. ALPRAZOLAM. [Concomitant]
     Active Substance: ALPRAZOLAM
  8. CYANOCOBALAM INJ [Concomitant]
  9. MYCOPHENOLATE [Suspect]
     Active Substance: MYCOPHENOLIC ACID
     Indication: FIBROMYALGIA
     Route: 048
     Dates: start: 20151119
  10. PANTOPRAZOLE [Concomitant]
     Active Substance: PANTOPRAZOLE

REACTIONS (1)
  - Anaphylactic reaction [None]

NARRATIVE: CASE EVENT DATE: 20190403
